FAERS Safety Report 9682779 (Version 9)
Quarter: 2014Q1

REPORT INFORMATION
  Report Type: Spontaneous
  Country: US (occurrence: US)
  Receive Date: 20131112
  Receipt Date: 20140309
  Transmission Date: 20141002
  Serious: Yes (Hospitalization, Other)
  Sender: FDA-Public Use
  Company Number: PHEH2006US015720

PATIENT
  Age: 77 Year
  Sex: Female
  Weight: 104.31 kg

DRUGS (51)
  1. AREDIA [Suspect]
     Indication: PLASMA CELL MYELOMA
     Dosage: 190 MG, QMO
     Route: 042
     Dates: start: 200201, end: 200202
  2. AREDIA [Suspect]
     Route: 042
     Dates: start: 200206
  3. ZOMETA [Suspect]
     Indication: PLASMA CELL MYELOMA
     Dosage: 4 MG, QMO
     Route: 042
     Dates: start: 200203, end: 2002
  4. COUMADIN [Concomitant]
  5. ARANESP [Concomitant]
  6. FAMOTIDINE [Concomitant]
  7. MELOXICAM [Concomitant]
  8. LISINOPRIL [Concomitant]
  9. DOXEPIN [Concomitant]
  10. TRAMADOL [Concomitant]
  11. MIRTAZAPINE [Concomitant]
  12. VASOTEC [Concomitant]
  13. TYLENOL [Concomitant]
  14. NEOSPORIN OINTMENT [Concomitant]
  15. NEURONTIN [Concomitant]
  16. FLAGYL [Concomitant]
  17. PRILOSEC [Concomitant]
  18. SYNTHROID [Concomitant]
  19. OMEPRAZOLE [Concomitant]
  20. LECITHIN [Concomitant]
  21. GLUCAGON [Concomitant]
  22. ONDANSETRON [Concomitant]
  23. CLONIDINE [Concomitant]
  24. HYDROMORPHONE [Concomitant]
  25. POTASSIUM CHLORIDE [Concomitant]
  26. MAGNESIUM SULFATE [Concomitant]
  27. LEVAQUIN [Concomitant]
  28. CIPROFLOXACIN [Concomitant]
  29. TRIAMTERENE AND HYDROCHLOROTHIAZID ^HARRIS^ [Concomitant]
  30. VINCRISTINE [Concomitant]
  31. ADRIAMYCIN [Concomitant]
  32. DEXAMETHASONE [Concomitant]
  33. AVELOX [Concomitant]
  34. COMBIVENT                               /GFR/ [Concomitant]
  35. ROBITUSSIN DM                           /USA/ [Concomitant]
  36. TESSALON PERLE [Concomitant]
  37. VELCADE [Concomitant]
  38. BEXTRA [Concomitant]
  39. LYRICA [Concomitant]
  40. AMOXICILLIN [Concomitant]
  41. ADVAIR [Concomitant]
  42. CLARINEX /USA/ [Concomitant]
  43. ALTACE [Concomitant]
  44. DARVOCET-N [Concomitant]
  45. REMERON [Concomitant]
  46. VITAMIN E [Concomitant]
  47. PYRIDIUM [Concomitant]
  48. AMBIEN [Concomitant]
  49. VIOXX [Concomitant]
  50. VIBRAMYCIN                              /NET/ [Concomitant]
  51. ARMOUR THYROID [Concomitant]
     Dosage: 180 MG, QD

REACTIONS (179)
  - Spinal column stenosis [Unknown]
  - Hiatus hernia [Recovering/Resolving]
  - Sciatica [Unknown]
  - Pulmonary embolism [Unknown]
  - Osteonecrosis of jaw [Unknown]
  - Exposed bone in jaw [Unknown]
  - Oral infection [Unknown]
  - General physical health deterioration [Unknown]
  - Pain [Unknown]
  - Anxiety [Unknown]
  - Decreased interest [Unknown]
  - Back pain [Recovering/Resolving]
  - Arthropathy [Unknown]
  - Spinal osteoarthritis [Unknown]
  - Sensory loss [Unknown]
  - Hypoaesthesia [Unknown]
  - Osteolysis [Unknown]
  - Dental caries [Unknown]
  - Swelling [Unknown]
  - Nausea [Recovering/Resolving]
  - Vomiting [Recovering/Resolving]
  - Abdominal pain [Recovering/Resolving]
  - Diarrhoea [Recovering/Resolving]
  - Pubis fracture [Unknown]
  - Gastritis [Recovering/Resolving]
  - Hypotension [Recovering/Resolving]
  - Dehydration [Recovering/Resolving]
  - Renal failure [Recovered/Resolved]
  - Renal mass [Recovering/Resolving]
  - Hypomagnesaemia [Recovering/Resolving]
  - Haemorrhoids [Unknown]
  - Anaemia of chronic disease [Unknown]
  - Electrolyte imbalance [Unknown]
  - Hyponatraemia [Unknown]
  - Scoliosis [Unknown]
  - Chronic obstructive pulmonary disease [Unknown]
  - Dyspnoea [Unknown]
  - Asthma [Unknown]
  - Intermittent claudication [Unknown]
  - Gingival bleeding [Unknown]
  - Pain in extremity [Recovering/Resolving]
  - Intervertebral disc protrusion [Unknown]
  - Haemangioma [Unknown]
  - Arthralgia [Unknown]
  - Dysphagia [Unknown]
  - Renal cyst [Unknown]
  - Hypoxia [Unknown]
  - Toothache [Recovered/Resolved]
  - Dysgeusia [Not Recovered/Not Resolved]
  - Tenderness [Not Recovered/Not Resolved]
  - Loose tooth [Unknown]
  - Gingivitis [Unknown]
  - Infection [Unknown]
  - Atelectasis [Unknown]
  - Pathological fracture [Unknown]
  - Soft tissue disorder [Unknown]
  - Bone lesion [Unknown]
  - Intervertebral disc degeneration [Unknown]
  - Cataract [Unknown]
  - Vision blurred [Unknown]
  - Pleural effusion [Unknown]
  - Hydronephrosis [Unknown]
  - Spondylolisthesis [Unknown]
  - Lumbar radiculopathy [Unknown]
  - Urinary tract obstruction [Unknown]
  - Neuropathy peripheral [Unknown]
  - Haemorrhage [Unknown]
  - Mental status changes [Unknown]
  - Wound infection [Unknown]
  - Symbolic dysfunction [Unknown]
  - Urinary retention [Unknown]
  - Mononeuritis [Unknown]
  - Candida infection [Unknown]
  - Urinary tract infection [Unknown]
  - Musculoskeletal pain [Unknown]
  - Influenza [Unknown]
  - Muscular weakness [Unknown]
  - Eye allergy [Unknown]
  - Joint swelling [Unknown]
  - Perineurial cyst [Unknown]
  - Lumbar spine flattening [Unknown]
  - Neurogenic bladder [Unknown]
  - Sinus congestion [Unknown]
  - Red blood cell abnormality [Unknown]
  - Malaise [Unknown]
  - Osteoarthritis [Unknown]
  - Joint dislocation [Unknown]
  - Osteopenia [Unknown]
  - Enthesopathy [Unknown]
  - Fall [Unknown]
  - Gastroenteritis viral [Unknown]
  - Arrhythmia [Unknown]
  - Periodontitis [Unknown]
  - Tooth abscess [Unknown]
  - Cardiomegaly [Unknown]
  - Presyncope [Unknown]
  - Diaphragmatic hernia [Unknown]
  - Rotator cuff syndrome [Unknown]
  - Syncope [Unknown]
  - Gastrointestinal haemorrhage [Unknown]
  - Intervertebral disc calcification [Unknown]
  - Lumbar spinal stenosis [Unknown]
  - Subclavian vein thrombosis [Unknown]
  - Plasma cell myeloma [Unknown]
  - Malignant neoplasm progression [Unknown]
  - Swelling face [Unknown]
  - Oedema peripheral [Unknown]
  - Haemoptysis [Unknown]
  - Gingivitis [Unknown]
  - Bronchial hyperreactivity [Unknown]
  - Left ventricular hypertrophy [Unknown]
  - Diastolic dysfunction [Unknown]
  - Herpes zoster [Unknown]
  - Kyphosis [Unknown]
  - Emphysema [Unknown]
  - Bronchospasm [Unknown]
  - Depression [Unknown]
  - Bacteriuria [Unknown]
  - Stress urinary incontinence [Unknown]
  - Infective exacerbation of chronic obstructive airways disease [Unknown]
  - Rectal haemorrhage [Unknown]
  - Large intestine polyp [Unknown]
  - Impaired healing [Unknown]
  - Pertussis [Unknown]
  - Deafness [Unknown]
  - Pulmonary fibrosis [Unknown]
  - Rhinitis allergic [Unknown]
  - Upper-airway cough syndrome [Unknown]
  - Respiratory failure [Unknown]
  - Osteoporosis [Unknown]
  - Cerumen impaction [Unknown]
  - Presbyoesophagus [Unknown]
  - Dysphonia [Unknown]
  - Compression fracture [Unknown]
  - Dysuria [Unknown]
  - Post herpetic neuralgia [Unknown]
  - Pyogenic granuloma [Unknown]
  - Blister [Unknown]
  - Ear pruritus [Unknown]
  - Laryngeal mass [Unknown]
  - Cervical vertebral fracture [Unknown]
  - Vocal cord disorder [Unknown]
  - Vaginal haemorrhage [Unknown]
  - Osteoporotic fracture [Unknown]
  - Nephrogenic anaemia [Unknown]
  - Spasmodic dysphonia [Unknown]
  - Hypertrophy [Unknown]
  - Rhinitis [Unknown]
  - Enterococcal infection [Unknown]
  - Spinal compression fracture [Unknown]
  - Dermoid cyst [Unknown]
  - Hyperkeratosis [Unknown]
  - Lung infiltration [Unknown]
  - Pulmonary mass [Unknown]
  - Pleural fibrosis [Unknown]
  - Hyperhidrosis [Unknown]
  - Somnolence [Unknown]
  - Pulmonary hilum mass [Unknown]
  - Hilar lymphadenopathy [Unknown]
  - Pulmonary hypertension [Unknown]
  - Tricuspid valve incompetence [Unknown]
  - Chest pain [Unknown]
  - Osteomyelitis [Unknown]
  - Tachyarrhythmia [Unknown]
  - Cardiac murmur [Unknown]
  - Essential hypertension [Unknown]
  - Mobility decreased [Unknown]
  - Headache [Unknown]
  - Hyperkalaemia [Unknown]
  - Leukocytosis [Unknown]
  - Myocardial infarction [Unknown]
  - Insomnia [Unknown]
  - Mountain sickness acute [Unknown]
  - Laceration [Unknown]
  - Fungal infection [Unknown]
  - Decubitus ulcer [Unknown]
  - Pyuria [Unknown]
  - Urticaria [Unknown]
  - Excessive granulation tissue [Unknown]
